FAERS Safety Report 12337380 (Version 1)
Quarter: 2016Q2

REPORT INFORMATION
  Report Type: Spontaneous
  Country: US (occurrence: JP)
  Receive Date: 20160505
  Receipt Date: 20160505
  Transmission Date: 20160815
  Serious: No
  Sender: FDA-Public Use
  Company Number: JP-WARNER CHILCOTT, LLC-1051493

PATIENT
  Age: 59 Year
  Sex: Female

DRUGS (3)
  1. TAKEPRON [Concomitant]
     Active Substance: LANSOPRAZOLE
  2. PREDNISOLONE. [Concomitant]
     Active Substance: PREDNISOLONE
  3. ACTONEL [Suspect]
     Active Substance: RISEDRONATE SODIUM
     Indication: OSTEOPOROSIS
     Route: 048
     Dates: start: 2009, end: 2016

REACTIONS (2)
  - Atypical fracture [Unknown]
  - Fall [Unknown]

NARRATIVE: CASE EVENT DATE: 20160407
